FAERS Safety Report 9909943 (Version 2)
Quarter: 2014Q1

REPORT INFORMATION
  Report Type: Spontaneous
  Country: US (occurrence: US)
  Receive Date: 20140219
  Receipt Date: 20140219
  Transmission Date: 20141002
  Serious: No
  Sender: FDA-Public Use
  Company Number: US-GILEAD-2012-0055136

PATIENT
  Sex: Female
  Weight: 114.74 kg

DRUGS (17)
  1. LETAIRIS [Suspect]
     Indication: PULMONARY HYPERTENSION
     Dosage: 5 MG, UNK
     Route: 048
     Dates: start: 20120228, end: 20120515
  2. LETAIRIS [Suspect]
     Indication: SCLERODERMA
  3. LEVOTHYROXINE [Concomitant]
  4. FUROSEMIDE [Concomitant]
  5. POTASSIUM CHLORIDE [Concomitant]
  6. SILDENAFIL [Concomitant]
  7. OXYGEN [Concomitant]
  8. ALBUTEROL                          /00139501/ [Concomitant]
  9. MELOXICAM [Concomitant]
  10. TIZANIDINE [Concomitant]
  11. HYDROCODONE W/ACETAMINOPHEN [Concomitant]
  12. OMEGA-3 FATTY ACIDS [Concomitant]
  13. BIOTIN [Concomitant]
  14. ASPIRIN (E.C.) [Concomitant]
  15. ESOMEPRAZOLE [Concomitant]
  16. HYDROCHLOROTHIAZIDE W/TRIAMTERENE [Concomitant]
  17. FOLIC ACID [Concomitant]

REACTIONS (8)
  - Chills [Recovered/Resolved]
  - Feeling abnormal [Unknown]
  - Malaise [Unknown]
  - Fatigue [Unknown]
  - Asthenia [Unknown]
  - Dyspnoea [Unknown]
  - Weight increased [Unknown]
  - Fluid retention [Unknown]
